FAERS Safety Report 8979280 (Version 3)
Quarter: 2013Q1

REPORT INFORMATION
  Report Type: Spontaneous
  Country: US (occurrence: US)
  Receive Date: 20121221
  Receipt Date: 20130225
  Transmission Date: 20140127
  Serious: No
  Sender: FDA-Public Use
  Company Number: US-PFIZER INC-2012324825

PATIENT
  Age: 49 Year
  Sex: Female
  Weight: 68.03 kg

DRUGS (5)
  1. EFFEXOR [Suspect]
     Indication: DEPRESSION
     Dosage: UNK
     Dates: start: 2003, end: 20121215
  2. EFFEXOR [Suspect]
     Indication: NEURALGIA
  3. NEURONTIN [Concomitant]
     Indication: SPINAL CORD DISORDER
     Dosage: 900 MG, 2X/DAY
  4. WELLBUTRIN [Concomitant]
     Indication: DEPRESSION
     Dosage: 300 MG, 2X/DAY
  5. WELLBUTRIN [Concomitant]
     Indication: NEURALGIA

REACTIONS (1)
  - Vertigo [Not Recovered/Not Resolved]
